FAERS Safety Report 24794036 (Version 1)
Quarter: 2024Q4

REPORT INFORMATION
  Report Type: Spontaneous
  Country: US (occurrence: None)
  Receive Date: 20241230
  Receipt Date: 20241230
  Transmission Date: 20250115
  Serious: Yes (Disabling)
  Sender: Public
  Company Number: None

PATIENT
  Age: 40 Year
  Sex: Female
  Weight: 67.5 kg

DRUGS (1)
  1. INVEGA SUSTENNA [Suspect]
     Active Substance: PALIPERIDONE PALMITATE
     Indication: Schizoaffective disorder bipolar type
     Dosage: OTHER QUANTITY : 1 INJECTION(S);?OTHER FREQUENCY : MONTHLY;?
     Route: 030
     Dates: start: 20241002, end: 20241127

REACTIONS (12)
  - Monoplegia [None]
  - Pain in extremity [None]
  - Arthralgia [None]
  - Movement disorder [None]
  - Arthralgia [None]
  - Neck pain [None]
  - Dizziness [None]
  - Headache [None]
  - Musculoskeletal stiffness [None]
  - Fine motor skill dysfunction [None]
  - Decreased interest [None]
  - Disturbance in attention [None]

NARRATIVE: CASE EVENT DATE: 20241002
